FAERS Safety Report 21760584 (Version 2)
Quarter: 2022Q4

REPORT INFORMATION
  Report Type: Spontaneous
  Country: JP (occurrence: JP)
  Receive Date: 20221221
  Receipt Date: 20221227
  Transmission Date: 20230113
  Serious: Yes (Life-Threatening)
  Sender: FDA-Public Use
  Company Number: JP-ELI_LILLY_AND_COMPANY-JP202212010473

PATIENT
  Age: 78 Year
  Sex: Female

DRUGS (2)
  1. VERZENIO [Suspect]
     Active Substance: ABEMACICLIB
     Indication: Breast cancer
     Dosage: UNK
     Route: 048
  2. FEMARA [Suspect]
     Active Substance: LETROZOLE
     Indication: Breast cancer
     Dosage: UNK
     Route: 048

REACTIONS (1)
  - Drug-induced liver injury [Not Recovered/Not Resolved]

NARRATIVE: CASE EVENT DATE: 20221201
